FAERS Safety Report 5384045-3 (Version None)
Quarter: 2007Q3

REPORT INFORMATION
  Report Type: 
  Country: None (occurrence: None)
  Receive Date: 20070711
  Receipt Date: 20070629
  Transmission Date: 20080115
  Serious: Yes (Disabling)
  Sender: FDA-Public Use
  Company Number: SE-AMGEN-US232965

PATIENT
  Sex: Female

DRUGS (2)
  1. ENBREL [Suspect]
     Indication: PSORIASIS
     Route: 058
     Dates: start: 20060615, end: 20060721
  2. METHOTREXATE [Concomitant]

REACTIONS (2)
  - EYE DEGENERATIVE DISORDER [None]
  - MACULAR OEDEMA [None]
